FAERS Safety Report 8619645-8 (Version None)
Quarter: 2012Q3

REPORT INFORMATION
  Report Type: 
  Country: None (occurrence: None)
  Receive Date: 20120824
  Receipt Date: 20120816
  Transmission Date: 20120928
  Serious: Yes (Hospitalization)
  Sender: FDA-Public Use
  Company Number: NO-JNJFOC-20120808902

PATIENT
  Age: 35 Year
  Sex: Female
  Weight: 45 kg

DRUGS (9)
  1. VALPROATE SODIUM [Concomitant]
     Route: 065
  2. LAMOTRIGINE [Concomitant]
     Route: 065
  3. ZONEGRAN [Interacting]
     Indication: EPILEPSY
     Route: 048
     Dates: start: 20110822, end: 20120109
  4. KARBAMAZEPIN [Concomitant]
     Route: 065
  5. NITRAZEPAM [Concomitant]
     Route: 065
  6. CLONAZEPAM [Concomitant]
     Route: 065
  7. LEVETIRACETAM [Concomitant]
     Route: 065
  8. TOPIRAMATE [Suspect]
     Indication: EPILEPSY
     Route: 048
     Dates: start: 20090901, end: 20120501
  9. PHENOBARBITAL TAB [Concomitant]
     Route: 065

REACTIONS (2)
  - DRUG INTERACTION [None]
  - PSYCHOTIC DISORDER [None]
